FAERS Safety Report 9475185 (Version 1)
Quarter: 2013Q3

REPORT INFORMATION
  Report Type: Spontaneous
  Country: FR (occurrence: FR)
  Receive Date: 20130825
  Receipt Date: 20130825
  Transmission Date: 20140515
  Serious: Yes (Life-Threatening, Hospitalization)
  Sender: FDA-Public Use
  Company Number: FR-BRISTOL-MYERS SQUIBB COMPANY-19190354

PATIENT
  Age: 68 Year
  Sex: Male

DRUGS (2)
  1. ABILIFY TABS 10 MG [Suspect]
     Indication: BIPOLAR DISORDER
     Dosage: 1DF:1TAB
     Route: 048
     Dates: start: 2013
  2. TERALITHE [Concomitant]
     Route: 048

REACTIONS (3)
  - Cardiac arrest [Unknown]
  - Anoxia [Unknown]
  - Delirium [Unknown]
